FAERS Safety Report 10201513 (Version 2)
Quarter: 2015Q2

REPORT INFORMATION
  Report Type: Spontaneous
  Country: US (occurrence: US)
  Receive Date: 20140528
  Receipt Date: 20150619
  Transmission Date: 20150821
  Serious: Yes (Life-Threatening, Hospitalization, Congenital Anomaly, Other)
  Sender: FDA-Public Use
  Company Number: US-ELI_LILLY_AND_COMPANY-US201405006870

PATIENT
  Sex: Female

DRUGS (6)
  1. ZYRTEC [Concomitant]
     Active Substance: CETIRIZINE HYDROCHLORIDE
     Route: 064
  2. SARAFEM [Suspect]
     Active Substance: FLUOXETINE HYDROCHLORIDE
     Indication: PREMENSTRUAL DYSPHORIC DISORDER
     Route: 064
  3. FERROUS SULFATE [Concomitant]
     Active Substance: FERROUS SULFATE\FERROUS SULFATE, DRIED
     Route: 064
  4. PRENATAL VITAMINS                  /08195401/ [Concomitant]
     Route: 064
  5. PEPCID AC [Concomitant]
     Active Substance: FAMOTIDINE
     Route: 064
  6. LORTAB [Concomitant]
     Active Substance: ACETAMINOPHEN\HYDROCODONE BITARTRATE
     Route: 064

REACTIONS (9)
  - Anomalous pulmonary venous connection [Unknown]
  - Cardiac failure congestive [Unknown]
  - Foetal growth restriction [Unknown]
  - Atrial septal defect [Unknown]
  - Foetal hypokinesia [Unknown]
  - Foetal exposure during pregnancy [Recovered/Resolved]
  - Bradycardia foetal [Unknown]
  - Transposition of the great vessels [Unknown]
  - Heterotaxia [Unknown]
